FAERS Safety Report 9929245 (Version 2)
Quarter: 2014Q2

REPORT INFORMATION
  Report Type: Spontaneous
  Country: IT (occurrence: IT)
  Receive Date: 20140227
  Receipt Date: 20140424
  Transmission Date: 20141212
  Serious: Yes (Hospitalization)
  Sender: FDA-Public Use
  Company Number: IT-PFIZER INC-2014054855

PATIENT
  Age: 2 Year
  Sex: Male

DRUGS (3)
  1. AZITHROMYCIN [Suspect]
     Indication: PHARYNGOTONSILLITIS
     Dosage: 150 MG, SINGLE
     Route: 048
     Dates: start: 20140215, end: 20140215
  2. FLIXOTIDE [Concomitant]
     Dosage: UNK
  3. VENTOLIN [Concomitant]
     Dosage: UNK

REACTIONS (3)
  - Erythema [Recovered/Resolved]
  - Pruritus [Recovered/Resolved]
  - Urticaria [Recovered/Resolved]
